FAERS Safety Report 18957106 (Version 2)
Quarter: 2021Q2

REPORT INFORMATION
  Report Type: Spontaneous
  Country: JP (occurrence: JP)
  Receive Date: 20210302
  Receipt Date: 20210420
  Transmission Date: 20210717
  Serious: Yes (Other)
  Sender: FDA-Public Use
  Company Number: JP-BEH-2021129008

PATIENT
  Age: 1 Year
  Sex: Male
  Weight: 7.9 kg

DRUGS (6)
  1. IDELVION [Suspect]
     Active Substance: COAGULATION FACTOR IX RECOMBINANT HUMAN
     Dosage: 500 INTERNATIONAL UNIT, QOW
     Route: 042
     Dates: start: 202009
  2. IDELVION [Suspect]
     Active Substance: COAGULATION FACTOR IX RECOMBINANT HUMAN
     Dosage: 500 INTERNATIONAL UNIT, QOW
     Route: 042
     Dates: start: 20200201
  3. IDELVION [Suspect]
     Active Substance: COAGULATION FACTOR IX RECOMBINANT HUMAN
     Dosage: 500 INTERNATIONAL UNIT, QOW
     Route: 042
     Dates: start: 202004
  4. IDELVION [Suspect]
     Active Substance: COAGULATION FACTOR IX RECOMBINANT HUMAN
     Dosage: 500 INTERNATIONAL UNIT, QOW
     Route: 042
     Dates: start: 20200201
  5. IDELVION [Suspect]
     Active Substance: COAGULATION FACTOR IX RECOMBINANT HUMAN
     Dosage: 500 INTERNATIONAL UNIT, QOW
     Route: 042
     Dates: start: 202009
  6. IDELVION [Suspect]
     Active Substance: COAGULATION FACTOR IX RECOMBINANT HUMAN
     Dosage: 500 INTERNATIONAL UNIT, QOW
     Route: 042
     Dates: start: 202004

REACTIONS (2)
  - Traumatic haemorrhage [Recovered/Resolved]
  - Traumatic haemorrhage [Recovered/Resolved]

NARRATIVE: CASE EVENT DATE: 202004
